FAERS Safety Report 9349353 (Version 1)
Quarter: 2013Q2

REPORT INFORMATION
  Report Type: Spontaneous
  Country: DE (occurrence: DE)
  Receive Date: 20130614
  Receipt Date: 20130614
  Transmission Date: 20140414
  Serious: Yes (Death)
  Sender: FDA-Public Use
  Company Number: DE-OTSUKA-EU-2013-10139

PATIENT
  Sex: Male

DRUGS (2)
  1. SAMSCA [Suspect]
     Indication: HYPONATRAEMIA
     Dosage: 15 MG MILLIGRAM(S), QD
  2. CHEMOTHERAPEUTICS [Concomitant]
     Dosage: UNK, UNKNOWN

REACTIONS (1)
  - Pulmonary embolism [Fatal]
